FAERS Safety Report 12177965 (Version 1)
Quarter: 2016Q1

REPORT INFORMATION
  Report Type: Spontaneous
  Country: FR (occurrence: FR)
  Receive Date: 20160314
  Receipt Date: 20160314
  Transmission Date: 20160526
  Serious: Yes (Hospitalization)
  Sender: FDA-Public Use
  Company Number: FR-JNJFOC-20160310109

PATIENT
  Age: 89 Year
  Sex: Male

DRUGS (9)
  1. OMEPRAZOLE. [Concomitant]
     Active Substance: OMEPRAZOLE
     Route: 065
  2. ZANIDIP [Concomitant]
     Active Substance: LERCANIDIPINE HYDROCHLORIDE
     Dosage: ZANIDIP 10 MG, OM
     Route: 065
  3. SILODOSIN [Concomitant]
     Active Substance: SILODOSIN
     Route: 065
  4. BI-PRETERAX [Concomitant]
     Dosage: BIPRETERAX 5MG/1.25 1-0-0
     Route: 065
  5. ASPEGIC [Concomitant]
     Active Substance: ASPIRIN DL-LYSINE
     Route: 065
  6. PHYSIOTENS [Concomitant]
     Active Substance: MOXONIDINE
     Dosage: PHYSIOTENS 0.2 MG, HS
     Route: 065
  7. XARELTO [Suspect]
     Active Substance: RIVAROXABAN
     Indication: PRODUCT USED FOR UNKNOWN INDICATION
     Route: 048
     Dates: end: 20160204
  8. AVODART [Concomitant]
     Active Substance: DUTASTERIDE
     Dosage: AVODART OM
     Route: 065
  9. ATENOLOL. [Concomitant]
     Active Substance: ATENOLOL
     Dosage: ATENOLOL 1/4-0-0
     Route: 065

REACTIONS (2)
  - Drug ineffective [Recovered/Resolved]
  - Transient ischaemic attack [Recovered/Resolved]

NARRATIVE: CASE EVENT DATE: 20160204
